FAERS Safety Report 15490819 (Version 2)
Quarter: 2019Q2

REPORT INFORMATION
  Report Type: Report from Study
  Country: None (occurrence: CA)
  Receive Date: 20181011
  Receipt Date: 20190409
  Transmission Date: 20190711
  Serious: Yes (Hospitalization, Other)
  Sender: FDA-Public Use
  Company Number: CA-ABBVIE-18K-028-2508710-00

PATIENT
  Age: 33 Year
  Sex: Female

DRUGS (3)
  1. HUMIRA [Suspect]
     Active Substance: ADALIMUMAB
     Route: 058
  2. HUMIRA [Suspect]
     Active Substance: ADALIMUMAB
     Indication: CROHN^S DISEASE
     Route: 058
     Dates: start: 20171006, end: 20180926
  3. METHOTREXATE. [Suspect]
     Active Substance: METHOTREXATE
     Indication: PRODUCT USED FOR UNKNOWN INDICATION
     Route: 065

REACTIONS (23)
  - Feeling of body temperature change [Not Recovered/Not Resolved]
  - Crohn^s disease [Not Recovered/Not Resolved]
  - Tissue injury [Unknown]
  - Injection site swelling [Recovering/Resolving]
  - Dysuria [Unknown]
  - Injection site induration [Recovering/Resolving]
  - Injection site erythema [Unknown]
  - Ovarian cyst torsion [Unknown]
  - Reproductive tract disorder [Unknown]
  - Somnolence [Not Recovered/Not Resolved]
  - Feeling abnormal [Not Recovered/Not Resolved]
  - Injection site warmth [Recovering/Resolving]
  - Injection site pruritus [Recovered/Resolved]
  - Multi-organ disorder [Not Recovered/Not Resolved]
  - Injection site pain [Not Recovered/Not Resolved]
  - Peritoneal cyst [Not Recovered/Not Resolved]
  - Drug-induced liver injury [Not Recovered/Not Resolved]
  - Uterine prolapse [Unknown]
  - Head discomfort [Unknown]
  - Fatigue [Not Recovered/Not Resolved]
  - Vaginal prolapse [Unknown]
  - Malaise [Not Recovered/Not Resolved]
  - Nasopharyngitis [Recovered/Resolved]

NARRATIVE: CASE EVENT DATE: 2018
